FAERS Safety Report 24868200 (Version 1)
Quarter: 2025Q1

REPORT INFORMATION
  Report Type: Spontaneous
  Country: US (occurrence: None)
  Receive Date: 20250120
  Receipt Date: 20250120
  Transmission Date: 20250409
  Serious: Yes (Other)
  Sender: FDA-CTU
  Company Number: None

PATIENT
  Age: 7 Month
  Sex: Female
  Weight: 7.5 kg

DRUGS (1)
  1. MULTI-VITAMIN WITH FLUORIDE [Suspect]
     Active Substance: .ALPHA.-TOCOPHEROL ACETATE\.ALPHA.-TOCOPHEROL ACETATE, DL-\ASCORBIC ACID\CHOLECALCIFEROL\CYANOCOBALA
     Indication: Prophylaxis
     Route: 048
     Dates: start: 20241213, end: 20250119

REACTIONS (1)
  - Fluorosis dental [None]

NARRATIVE: CASE EVENT DATE: 20250113
